FAERS Safety Report 4860262-3 (Version None)
Quarter: 2005Q4

REPORT INFORMATION
  Report Type: 
  Country: None (occurrence: None)
  Receive Date: 20051215
  Receipt Date: 20051207
  Transmission Date: 20060501
  Serious: Yes (Hospitalization)
  Sender: FDA-Public Use
  Company Number: 217821

PATIENT
  Age: 51 Year
  Sex: Female
  Weight: 51.2 kg

DRUGS (14)
  1. XOLAIR [Suspect]
     Indication: ASTHMA
     Dosage: 150 MG, 1/MONTH, SUBCUTANEOUS
     Route: 058
     Dates: start: 20030725, end: 20050805
  2. PROTONIX [Concomitant]
  3. AZULFIDINE [Concomitant]
  4. ALEVE [Concomitant]
  5. TRAMADOL (TRAMADOL HYDOCHLORIDE) [Concomitant]
  6. MAXAIR [Concomitant]
  7. ADVAIR DISKUS 100/50 [Concomitant]
  8. SINGULAIR [Concomitant]
  9. ZYRTEC [Concomitant]
  10. FLONASE [Concomitant]
  11. IPRATROPIUM (IPRATROPIUM BROMIDE) [Concomitant]
  12. ASPERCREME (TROLAMINE SALICYLATE) [Concomitant]
  13. FOLIC ACID [Concomitant]
  14. DITROPAN [Concomitant]

REACTIONS (30)
  - ALLERGIC GRANULOMATOUS ANGIITIS [None]
  - ARTHRALGIA [None]
  - ASTHMA [None]
  - BLOOD ALBUMIN DECREASED [None]
  - COLLAGEN-VASCULAR DISEASE [None]
  - CONDITION AGGRAVATED [None]
  - DEATH OF SPOUSE [None]
  - DISEASE PROGRESSION [None]
  - EOSINOPHILIA [None]
  - EOSINOPHILIC PNEUMONIA [None]
  - EXPOSURE TO ALLERGEN [None]
  - HAEMOGLOBIN DECREASED [None]
  - HYPOCHROMASIA [None]
  - HYPOKINESIA [None]
  - JOINT SWELLING [None]
  - LACERATION [None]
  - LEGIONELLA INFECTION [None]
  - LIMB INJURY [None]
  - LUNG INFILTRATION [None]
  - MICROCYTOSIS [None]
  - OEDEMA PERIPHERAL [None]
  - PLATELET COUNT INCREASED [None]
  - PNEUMONIA [None]
  - PNEUMONIA PRIMARY ATYPICAL [None]
  - RED BLOOD CELL SEDIMENTATION RATE INCREASED [None]
  - RHEUMATOID ARTHRITIS [None]
  - RHEUMATOID FACTOR POSITIVE [None]
  - SINUSITIS [None]
  - SPORTS INJURY [None]
  - STRESS [None]
